FAERS Safety Report 18862428 (Version 5)
Quarter: 2022Q1

REPORT INFORMATION
  Report Type: Report from Study
  Country: MX (occurrence: MX)
  Receive Date: 20210208
  Receipt Date: 20220104
  Transmission Date: 20220424
  Serious: Yes (Other)
  Sender: FDA-Public Use
  Company Number: NVSC2020MX340747

PATIENT
  Sex: Female
  Weight: 53 kg

DRUGS (20)
  1. DIOVAN [Suspect]
     Active Substance: VALSARTAN
     Indication: Hypertension
     Dosage: 1.5 DF, BID
     Route: 048
  2. DIOVAN [Suspect]
     Active Substance: VALSARTAN
     Dosage: 1 DOSAGE FORM, QD (160 MG)
     Route: 048
     Dates: start: 2017, end: 202103
  3. DIOVAN [Suspect]
     Active Substance: VALSARTAN
     Dosage: 2 DF, QD
     Route: 048
     Dates: start: 20190525
  4. DIOVAN [Suspect]
     Active Substance: VALSARTAN
     Dosage: 160 MG (2.5 DF) (1 AND A HALF IN THE MORNING AND 1 IN THE AFTERNOON)
     Route: 048
     Dates: start: 201910
  5. DIOVAN [Suspect]
     Active Substance: VALSARTAN
     Dosage: 1 DF, BID
     Route: 048
     Dates: start: 202001
  6. DIOVAN [Suspect]
     Active Substance: VALSARTAN
     Dosage: 1 AND A HALF IN THE MORNING AND 1 AT NIGHT
     Route: 065
     Dates: start: 202002, end: 20210318
  7. DIOVAN [Suspect]
     Active Substance: VALSARTAN
     Dosage: 1 DF (160 MG), BID
     Route: 048
     Dates: start: 202002
  8. DIOVAN [Suspect]
     Active Substance: VALSARTAN
     Dosage: 2.5 DF, QD
     Route: 048
     Dates: start: 202009
  9. DIOVAN [Suspect]
     Active Substance: VALSARTAN
     Dosage: 2.5 DF, QD
     Route: 048
     Dates: start: 202009
  10. DIOVAN [Suspect]
     Active Substance: VALSARTAN
     Dosage: 2.5 DF (160 MG) QD, 1 AND HALF IN MORNING AND 1 AT NIGHT
     Route: 048
  11. DIOVAN [Suspect]
     Active Substance: VALSARTAN
     Dosage: 2.5 DOSAGE FORM (1 IN THE MORNING, 1 IN THE AFTERNOON AND 1/2 AT NIGHT)
     Route: 048
  12. DIOVAN [Suspect]
     Active Substance: VALSARTAN
     Dosage: 2.5 DOSAGE FORM, QD (1 IN THE MORNING, 1 IN THE AFTERNOON AND ? AT NIGHT)
     Route: 048
     Dates: start: 201803, end: 202103
  13. ASPIRIN [Concomitant]
     Active Substance: ASPIRIN
     Indication: Peripheral venous disease
     Dosage: 1 DF, QD
     Route: 065
  14. ASPIRIN [Concomitant]
     Active Substance: ASPIRIN
     Dosage: 1 DOSAGE FORM, QD
     Route: 048
  15. ALLOPURINOL [Concomitant]
     Active Substance: ALLOPURINOL
     Indication: Blood uric acid increased
     Dosage: 1 DF, QD
     Route: 065
  16. ALLOPURINOL [Concomitant]
     Active Substance: ALLOPURINOL
     Dosage: 1 DOSAGE FORM, QD
     Route: 048
  17. OMEPRAZOLE [Concomitant]
     Active Substance: OMEPRAZOLE
     Indication: Reflux gastritis
     Dosage: 1 DOSAGE FORM, QD
     Route: 048
  18. SULODEXIDE [Concomitant]
     Active Substance: SULODEXIDE
     Indication: Peripheral venous disease
     Dosage: 1 DOSAGE FORM, QD (250 MG)
     Route: 048
  19. VITAMIN B COMPLEX [Concomitant]
     Active Substance: CYANOCOBALAMIN\DEXPANTHENOL\NIACINAMIDE\PYRIDOXINE HYDROCHLORIDE\RIBOFLAVIN 5^-PHOSPHATE SODIUM\THIA
     Indication: Vitamin supplementation
     Dosage: 1 DOSAGE FORM, QD
     Route: 048
  20. DIGOXIN [Concomitant]
     Active Substance: DIGOXIN
     Indication: Myocardial infarction
     Dosage: 1 DOSAGE FORM (FROM MONDAY TO FRIDAY)
     Route: 048
     Dates: start: 1985

REACTIONS (10)
  - Blood pressure diastolic increased [Unknown]
  - Breast cancer [Unknown]
  - Blood pressure fluctuation [Recovered/Resolved]
  - Vaccination complication [Recovered/Resolved]
  - Oropharyngeal discomfort [Unknown]
  - Hypertension [Unknown]
  - Fluid retention [Recovered/Resolved]
  - Off label use [Unknown]
  - Wrong technique in product usage process [Unknown]
  - Drug ineffective [Unknown]

NARRATIVE: CASE EVENT DATE: 19850101
